FAERS Safety Report 6431047-1 (Version None)
Quarter: 2009Q4

REPORT INFORMATION
  Report Type: 
  Country: None (occurrence: None)
  Receive Date: 20091106
  Receipt Date: 20091104
  Transmission Date: 20100525
  Serious: Yes (Death, Hospitalization)
  Sender: FDA-Public Use
  Company Number: US-TEVA-214271USA

PATIENT
  Sex: Female
  Weight: 82.083 kg

DRUGS (27)
  1. PACLITAXEL [Suspect]
     Indication: BREAST CANCER METASTATIC
     Dosage: 116MG DAILY-WEEKLY 3-4 WEEKS
     Route: 042
     Dates: start: 20081028, end: 20090203
  2. SUNITINIB MALATE ( ANDA 21-938) [Suspect]
     Indication: BREAST CANCER METASTATIC
     Dates: start: 20081028, end: 20090217
  3. VENLAFAXINE HCL [Concomitant]
     Dates: start: 20080501
  4. DOCUSATE SODIUM [Concomitant]
     Dates: start: 20080101
  5. IBUPROFEN [Concomitant]
     Dates: start: 20040117
  6. ZOLPIDEM TARTRATE [Concomitant]
     Dates: start: 20080401
  7. HYDROCHLOROTHIAZIDE [Concomitant]
     Dates: start: 20080818
  8. ZOLEDRONIC ACID [Concomitant]
     Dates: start: 20080819
  9. CALCIUM [Concomitant]
     Dates: start: 20080819
  10. ERGOCALCIFEROL [Concomitant]
     Dates: start: 20080819
  11. FISH OIL [Concomitant]
     Dates: start: 20080301
  12. TOCOPHEROL CONCENTRATE CAP [Concomitant]
     Dates: start: 20080301
  13. ASCORBIC ACID [Concomitant]
     Dates: start: 20080801
  14. CYANOCOBALAMIN [Concomitant]
     Dates: start: 20080301
  15. DIPHENHYDRAMINE HYDROCHLORIDE [Concomitant]
     Dates: start: 19980101
  16. LOTRISONE [Concomitant]
  17. LORAZEPAM [Concomitant]
     Dates: start: 20081111
  18. PROCHLORPERAZINE [Concomitant]
     Dates: start: 20081111
  19. MAGIC MOUTHWASH (ALUMINIM HYDROXIDE, DIPHENHYDRAMINE HYDROCHLORIDE, LI [Concomitant]
     Dates: start: 20081120
  20. HYDROCODONE [Concomitant]
     Dates: end: 20090212
  21. SODIUM CHLORIDE [Concomitant]
     Dates: start: 20081216
  22. GELCLAIR [Concomitant]
     Dates: start: 20081226
  23. CETIRIZINE HYDROCHLORIDE [Concomitant]
     Dates: start: 20040101
  24. PROMETHAZINE [Concomitant]
     Dates: start: 20090126
  25. ONDANSETRON [Concomitant]
     Dates: start: 20090127
  26. MORPHINE SULFATE [Concomitant]
     Dates: start: 20090212
  27. HYDROMORPHONE [Concomitant]
     Dates: start: 20090212

REACTIONS (4)
  - ACUTE RESPIRATORY FAILURE [None]
  - HYPOKALAEMIA [None]
  - PANCYTOPENIA [None]
  - PLEURAL EFFUSION [None]
